FAERS Safety Report 7372974-0 (Version None)
Quarter: 2011Q1

REPORT INFORMATION
  Report Type: 
  Country: None (occurrence: None)
  Receive Date: 20110311
  Receipt Date: 20110222
  Transmission Date: 20110831
  Serious: Yes (Other)
  Sender: FDA-Public Use
  Company Number: 2011SP009469

PATIENT
  Age: 51 Year
  Sex: Female

DRUGS (2)
  1. SAPHRIS [Suspect]
     Indication: SCHIZOPHRENIA
     Dosage: 5 MG, BID, SL
     Route: 060
  2. BIODENT [Concomitant]

REACTIONS (2)
  - SWOLLEN TONGUE [None]
  - DRUG HYPERSENSITIVITY [None]
